FAERS Safety Report 18811736 (Version 1)
Quarter: 2021Q1

REPORT INFORMATION
  Report Type: Spontaneous
  Country: RO (occurrence: RO)
  Receive Date: 20210129
  Receipt Date: 20210129
  Transmission Date: 20210419
  Serious: Yes (Other)
  Sender: FDA-Public Use
  Company Number: RO-ASTRAZENECA-2021A016508

PATIENT
  Age: 16725 Day
  Sex: Female

DRUGS (1)
  1. FASENRA [Suspect]
     Active Substance: BENRALIZUMAB
     Indication: ASTHMA
     Route: 058
     Dates: start: 20191218

REACTIONS (7)
  - Dysphoria [Recovering/Resolving]
  - Cough [Recovering/Resolving]
  - Respiratory tract infection [Recovering/Resolving]
  - Inappropriate schedule of product administration [Unknown]
  - Lymphadenitis [Unknown]
  - Lymphadenopathy [Recovering/Resolving]
  - Rhinorrhoea [Recovering/Resolving]

NARRATIVE: CASE EVENT DATE: 20210112
